FAERS Safety Report 25368116 (Version 1)
Quarter: 2025Q2

REPORT INFORMATION
  Report Type: Spontaneous
  Country: AR (occurrence: AR)
  Receive Date: 20250528
  Receipt Date: 20250528
  Transmission Date: 20250717
  Serious: Yes (Other)
  Sender: NOVARTIS
  Company Number: AR-SANDOZ-SDZ2024AR099561

PATIENT
  Age: 48 Year
  Sex: Female

DRUGS (3)
  1. ETANERCEPT [Suspect]
     Active Substance: ETANERCEPT
     Indication: Product used for unknown indication
     Route: 065
     Dates: start: 20241025
  2. METHOTREXATE [Suspect]
     Active Substance: METHOTREXATE
     Indication: Product used for unknown indication
     Route: 065
  3. COSENTYX [Suspect]
     Active Substance: SECUKINUMAB
     Indication: Product used for unknown indication
     Route: 065
     Dates: start: 20211026, end: 202308

REACTIONS (8)
  - Psoriatic arthropathy [Unknown]
  - Breast cancer [Recovering/Resolving]
  - Restlessness [Unknown]
  - Skin irritation [Unknown]
  - Hypersensitivity [Unknown]
  - Rash [Recovering/Resolving]
  - Urticaria [Unknown]
  - Pruritus [Unknown]

NARRATIVE: CASE EVENT DATE: 20230701
